FAERS Safety Report 10075907 (Version 2)
Quarter: 2014Q2

REPORT INFORMATION
  Report Type: Report from Study
  Country: ES (occurrence: ES)
  Receive Date: 20140414
  Receipt Date: 20140414
  Transmission Date: 20141212
  Serious: Yes (Death, Hospitalization)
  Sender: FDA-Public Use
  Company Number: ES-BAYER-2014-017573

PATIENT
  Age: 75 Year
  Sex: Male
  Weight: 84 kg

DRUGS (2)
  1. REGORAFENIB [Suspect]
     Indication: COLORECTAL CANCER METASTATIC
     Dosage: 160 MG DAILY, DAYS 1-21
     Route: 048
     Dates: start: 20121101, end: 20131230
  2. TARGIN [Concomitant]
     Indication: TUMOUR PAIN
     Dosage: 10/5 MG, EVERY 12 H
     Route: 048
     Dates: start: 20131113, end: 20131230

REACTIONS (1)
  - Pulmonary embolism [Fatal]
